FAERS Safety Report 6035487-4 (Version None)
Quarter: 2009Q1

REPORT INFORMATION
  Report Type: 
  Country: None (occurrence: None)
  Receive Date: 20090112
  Receipt Date: 20090112
  Transmission Date: 20090719
  Serious: Yes (Hospitalization)
  Sender: FDA-Public Use
  Company Number: None

PATIENT
  Age: 19 Year
  Sex: Female
  Weight: 86.1834 kg

DRUGS (2)
  1. ORTHO TRI-CYCLEN [Suspect]
     Indication: OVARIAN CYST
     Dosage: ONE PILL DAILY PO
     Route: 048
     Dates: start: 20050623, end: 20060623
  2. YASMIN [Suspect]
     Indication: OVARIAN CYST
     Dosage: ONE PILL DAILY PO
     Route: 048
     Dates: start: 20060723, end: 20081231

REACTIONS (6)
  - ABDOMINAL PAIN UPPER [None]
  - DIARRHOEA [None]
  - DYSPEPSIA [None]
  - GALLBLADDER DISORDER [None]
  - NAUSEA [None]
  - VOMITING [None]
